FAERS Safety Report 20742337 (Version 1)
Quarter: 2022Q2

REPORT INFORMATION
  Report Type: Spontaneous
  Country: HR (occurrence: HR)
  Receive Date: 20220424
  Receipt Date: 20220424
  Transmission Date: 20220721
  Serious: Yes (Other)
  Sender: FDA-Public Use
  Company Number: None

PATIENT
  Age: 50 Year
  Sex: Female

DRUGS (3)
  1. VENLAFAXINE [Suspect]
     Active Substance: VENLAFAXINE HYDROCHLORIDE
     Dosage: UNIT DOSE: 375 MG, FREQUENCY TIME : 1 DAY, DURATION : 1 DAY
     Route: 048
     Dates: start: 20220225, end: 20220225
  2. XANAX [Suspect]
     Active Substance: ALPRAZOLAM
     Dosage: UNIT DOSE: 15 DF, FREQUENCY TIME : 1 DAY, DURATION : 1 DAY
     Route: 048
     Dates: start: 20220225, end: 20220225
  3. RIVOTRIL [Suspect]
     Active Substance: CLONAZEPAM
     Dosage: UNIT DOSE: 15 MG, FREQUENCY TIME : 1 DAY, DURATION : 1 DAY
     Route: 048
     Dates: start: 20220225, end: 20220225

REACTIONS (4)
  - Oxygen saturation decreased [Unknown]
  - Suicide attempt [Unknown]
  - Intentional overdose [Unknown]
  - Somnolence [Unknown]

NARRATIVE: CASE EVENT DATE: 20220225
